FAERS Safety Report 24965976 (Version 1)
Quarter: 2025Q1

REPORT INFORMATION
  Report Type: Spontaneous
  Country: US (occurrence: US)
  Receive Date: 20250213
  Receipt Date: 20250213
  Transmission Date: 20250409
  Serious: Yes (Other)
  Sender: SANOFI AVENTIS
  Company Number: US-DialogSolutions-SAAVPROD-PI740339-C1

PATIENT
  Sex: Male

DRUGS (14)
  1. GLIMEPIRIDE [Suspect]
     Active Substance: GLIMEPIRIDE
     Indication: Type 2 diabetes mellitus
  2. METFORMIN HYDROCHLORIDE [Suspect]
     Active Substance: METFORMIN HYDROCHLORIDE
     Indication: Type 2 diabetes mellitus
  3. JARDIANCE [Suspect]
     Active Substance: EMPAGLIFLOZIN
     Indication: Type 2 diabetes mellitus
  4. JARDIANCE [Suspect]
     Active Substance: EMPAGLIFLOZIN
  5. ASPIRIN [Concomitant]
     Active Substance: ASPIRIN
     Indication: Acute myocardial infarction
  6. ASPIRIN [Concomitant]
     Active Substance: ASPIRIN
  7. PRASUGREL [Concomitant]
     Active Substance: PRASUGREL
     Indication: Acute myocardial infarction
  8. LIPITOR [Concomitant]
     Active Substance: ATORVASTATIN CALCIUM
     Indication: Hyperlipidaemia
  9. COREG [Concomitant]
     Active Substance: CARVEDILOL
     Indication: Hypertension
  10. COREG [Concomitant]
     Active Substance: CARVEDILOL
     Indication: Acute myocardial infarction
  11. LISINOPRIL [Concomitant]
     Active Substance: LISINOPRIL
     Indication: Hypertension
  12. INSULIN NOS [Concomitant]
     Active Substance: INSULIN NOS
     Indication: Type 2 diabetes mellitus
  13. TRILEPTAL [Concomitant]
     Active Substance: OXCARBAZEPINE
     Indication: Seizure
  14. LOVENOX [Concomitant]
     Active Substance: ENOXAPARIN SODIUM
     Indication: Thrombosis prophylaxis

REACTIONS (5)
  - Diabetic neuropathy [Unknown]
  - Treatment noncompliance [Unknown]
  - Peripheral sensory neuropathy [Unknown]
  - Impaired gastric emptying [Unknown]
  - Urinary incontinence [Unknown]
